FAERS Safety Report 6468704-7 (Version None)
Quarter: 2009Q4

REPORT INFORMATION
  Report Type: 
  Country: None (occurrence: None)
  Receive Date: 20091203
  Receipt Date: 20091124
  Transmission Date: 20100525
  Serious: Yes (Other)
  Sender: FDA-Public Use
  Company Number: AU-AMGEN-US365658

PATIENT
  Sex: Male
  Weight: 56.3 kg

DRUGS (3)
  1. NPLATE [Suspect]
     Indication: IDIOPATHIC THROMBOCYTOPENIC PURPURA
     Route: 058
     Dates: start: 20090803
  2. MICARDIS [Concomitant]
     Route: 048
  3. MIRTAZAPINE [Concomitant]
     Route: 048

REACTIONS (1)
  - DEPRESSION [None]
